FAERS Safety Report 9363227 (Version 1)
Quarter: 2013Q2

REPORT INFORMATION
  Report Type: Spontaneous
  Country: US (occurrence: US)
  Receive Date: 20130624
  Receipt Date: 20130624
  Transmission Date: 20140414
  Serious: No
  Sender: FDA-Public Use
  Company Number: US-BIOGENIDEC-2013BI053991

PATIENT
  Sex: Female

DRUGS (1)
  1. TYSABRI [Suspect]
     Indication: MULTIPLE SCLEROSIS
     Route: 042

REACTIONS (5)
  - Platelet count decreased [Unknown]
  - Blood potassium abnormal [Unknown]
  - Blood test abnormal [Unknown]
  - Eosinophil count increased [Unknown]
  - Lethargy [Not Recovered/Not Resolved]
